FAERS Safety Report 8561294-4 (Version None)
Quarter: 2012Q3

REPORT INFORMATION
  Report Type: 
  Country: None (occurrence: None)
  Receive Date: 20120802
  Receipt Date: 20120716
  Transmission Date: 20120928
  Serious: No
  Sender: FDA-Public Use
  Company Number: US-ASTRAZENECA-2012SE00722

PATIENT
  Age: 494 Month
  Sex: Female

DRUGS (1)
  1. SEROQUEL XR [Suspect]
     Indication: DEPRESSION
     Route: 048

REACTIONS (11)
  - AGGRESSION [None]
  - PAIN [None]
  - FRUSTRATION [None]
  - DRUG DOSE OMISSION [None]
  - WOUND INFECTION [None]
  - ANGER [None]
  - MOOD SWINGS [None]
  - LIMB INJURY [None]
  - CRYING [None]
  - ANXIETY [None]
  - WITHDRAWAL SYNDROME [None]
